FAERS Safety Report 10262481 (Version 7)
Quarter: 2014Q4

REPORT INFORMATION
  Report Type: Spontaneous
  Country: DE (occurrence: DE)
  Receive Date: 20140626
  Receipt Date: 20141112
  Transmission Date: 20150528
  Serious: Yes (Death, Other)
  Sender: FDA-Public Use
  Company Number: DE-PFIZER INC-2014156728

PATIENT
  Age: 25 Year
  Sex: Male

DRUGS (2)
  1. LYRICA [Suspect]
     Active Substance: PREGABALIN
     Indication: INTERVERTEBRAL DISC PROTRUSION
     Dosage: 300 MG, UNK
     Route: 048
     Dates: start: 20140404
  2. FENTANYL. [Suspect]
     Active Substance: FENTANYL
     Indication: INTERVERTEBRAL DISC PROTRUSION
     Dosage: 50 UG/H EVERY 3 DAYS
     Route: 062

REACTIONS (4)
  - Drug abuse [Unknown]
  - Drug dependence [Fatal]
  - Withdrawal syndrome [Unknown]
  - Overdose [Fatal]
